FAERS Safety Report 4759914-5 (Version None)
Quarter: 2005Q3

REPORT INFORMATION
  Report Type: 
  Country: None (occurrence: None)
  Receive Date: 20050831
  Receipt Date: 20050831
  Transmission Date: 20060218
  Serious: Yes (Life-Threatening, Hospitalization)
  Sender: FDA-Public Use
  Company Number: None

PATIENT
  Age: 76 Year
  Sex: Female

DRUGS (10)
  1. METFORMIN [Suspect]
     Indication: DIABETES MELLITUS
     Dosage: PO
     Route: 048
  2. LIPITOR [Concomitant]
  3. VERAPAMIL -CALAN- [Concomitant]
  4. LOPRESSOR [Concomitant]
  5. COZAAR [Concomitant]
  6. LASIX [Concomitant]
  7. POTASSIUM CHLORIDE -KLOR-CON- [Concomitant]
  8. COUMADIN [Concomitant]
  9. REPAGLINIDE -PRANDIN- [Concomitant]
  10. KLONOPIN [Concomitant]

REACTIONS (9)
  - CARDIAC ARREST [None]
  - CARDIAC PACEMAKER MALFUNCTION [None]
  - DECREASED APPETITE [None]
  - ELECTROMECHANICAL DISSOCIATION [None]
  - LACTIC ACIDOSIS [None]
  - MALAISE [None]
  - RENAL FAILURE [None]
  - URINE OUTPUT DECREASED [None]
  - VENTRICULAR FIBRILLATION [None]
